FAERS Safety Report 5708228-5 (Version None)
Quarter: 2008Q2

REPORT INFORMATION
  Report Type: 
  Country: None (occurrence: None)
  Receive Date: 20080417
  Receipt Date: 20080414
  Transmission Date: 20081010
  Serious: Yes (Death, Hospitalization, Other)
  Sender: FDA-Public Use
  Company Number: FR-BRISTOL-MYERS SQUIBB COMPANY-14137632

PATIENT
  Age: 48 Year
  Sex: Male

DRUGS (5)
  1. MODITEN [Suspect]
     Dosage: THERAPY DUR- 20YEARS 23 WEEKS 3 DAYS
     Route: 048
     Dates: start: 19810615, end: 20011101
  2. TIAPRIDAL [Suspect]
     Dosage: THERAPY DUR- 20YEARS 23 WEEKS 3 DAYS; 100MG TABLET
     Route: 048
     Dates: start: 19810615
  3. LEPTICUR [Suspect]
     Dosage: THERAPY DUR- 20YEARS 23 WEEKS 3 DAYS, 10MG TABLET
     Route: 048
     Dates: start: 19810615
  4. NOZINAN [Suspect]
     Dosage: THERAPY DUR- 20YEARS 23 WEEKS 3 DAYS
     Route: 048
     Dates: start: 19810615
  5. ANTICHOLINERGIC AGENT [Concomitant]

REACTIONS (4)
  - ABDOMINAL PAIN [None]
  - COLITIS ISCHAEMIC [None]
  - NECROTISING COLITIS [None]
  - VOMITING [None]
